FAERS Safety Report 7877812-5 (Version None)
Quarter: 2011Q4

REPORT INFORMATION
  Report Type: 
  Country: None (occurrence: None)
  Receive Date: 20111031
  Receipt Date: 20111031
  Transmission Date: 20120403
  Serious: Yes (Other)
  Sender: FDA-Public Use
  Company Number: None

PATIENT
  Age: 44 Year
  Sex: Female
  Weight: 90.718 kg

DRUGS (1)
  1. METAXALONE [Suspect]
     Indication: BACK PAIN
     Dosage: 800 MG
     Route: 048
     Dates: start: 20090101, end: 20111028

REACTIONS (3)
  - DISTURBANCE IN ATTENTION [None]
  - DISINHIBITION [None]
  - LOSS OF EMPLOYMENT [None]
